FAERS Safety Report 24269144 (Version 1)
Quarter: 2024Q3

REPORT INFORMATION
  Report Type: Spontaneous
  Country: BR (occurrence: BR)
  Receive Date: 20240830
  Receipt Date: 20240830
  Transmission Date: 20241017
  Serious: Yes (Other)
  Sender: FRESENIUS KABI
  Company Number: BR-FreseniusKabi-FK202412727

PATIENT
  Age: 48 Year
  Sex: Female
  Weight: 70 kg

DRUGS (5)
  1. MANNITOL [Suspect]
     Active Substance: MANNITOL
     Indication: Colonoscopy
     Dosage: 500 ML MANITOL + 500 ML WATER TAKE THE FULL VOLUME IN ONE HOUR AND A HALF.?INJECTABLE MANNITOL, 2 BA
     Route: 048
     Dates: start: 20240815, end: 20240815
  2. MANNITOL [Suspect]
     Active Substance: MANNITOL
     Indication: Endoscopy
  3. ROSUVASTATIN [Concomitant]
     Active Substance: ROSUVASTATIN\ROSUVASTATIN CALCIUM
     Indication: Type IIa hyperlipidaemia
     Dosage: DOSAGE NOT INFORMED EACH 24 HOURS AT NIGHT
     Route: 048
  4. ESCITALOPRAM [Concomitant]
     Active Substance: ESCITALOPRAM OXALATE
     Indication: Product used for unknown indication
     Dosage: DOSAGE NOT INFORMED EACH 24 HOURS IN THE MORNIG
     Route: 048
  5. TRAZODONE HYDROCHLORIDE [Concomitant]
     Active Substance: TRAZODONE HYDROCHLORIDE
     Indication: Insomnia
     Dosage: DOSAGE NOT INFORMED EACH 24 HOURS AT NIGHT
     Route: 048

REACTIONS (7)
  - Near death experience [Recovered/Resolved]
  - Nail discolouration [Recovered/Resolved]
  - Nausea [Recovered/Resolved]
  - Off label use [Unknown]
  - Chills [Recovered/Resolved]
  - Vomiting [Recovered/Resolved]
  - Hyperhidrosis [Recovered/Resolved]

NARRATIVE: CASE EVENT DATE: 20240815
